FAERS Safety Report 10203929 (Version 2)
Quarter: 2014Q2

REPORT INFORMATION
  Report Type: Spontaneous
  Country: US (occurrence: US)
  Receive Date: 20140529
  Receipt Date: 20140529
  Transmission Date: 20141212
  Serious: No
  Sender: FDA-Public Use
  Company Number: US-MYLANLABS-2013S1007943

PATIENT
  Age: 64 Year
  Sex: Male
  Weight: 88 kg

DRUGS (33)
  1. BUPROPION HYDROCHLORIDE TABLETS [Suspect]
     Indication: DEPRESSION
     Route: 048
     Dates: start: 2012, end: 20130423
  2. BUPROPION HYDROCHLORIDE TABLETS [Suspect]
     Indication: PAIN
     Route: 048
     Dates: start: 2012, end: 20130423
  3. LISINOPRIL [Concomitant]
     Indication: BLOOD PRESSURE INCREASED
     Route: 048
  4. HYDROXIZINE [Concomitant]
     Indication: INSOMNIA
     Dosage: (2) 25 MG TABLETS HS
     Route: 048
  5. CHLOROQUINE [Concomitant]
     Indication: MULTIPLE ALLERGIES
  6. COLCHICINE [Concomitant]
     Indication: ANKYLOSING SPONDYLITIS
     Route: 048
  7. TRAZODONE [Concomitant]
     Indication: INSOMNIA
     Dosage: 1/6 OF 150MG TABLET NIGHTLY
     Route: 048
  8. ECOTRIN [Concomitant]
     Indication: CARDIAC FAILURE CONGESTIVE
     Route: 048
  9. CYCLOBENZAPRINE [Concomitant]
     Indication: RESTLESS LEGS SYNDROME
     Dosage: ALSO USED FOR SLEEP
     Route: 048
  10. LASIX [Concomitant]
     Indication: CARDIAC FAILURE CONGESTIVE
     Dosage: ALSO USED FOR ALLERGIC EDEMA; 40MG TABLETS
     Route: 048
  11. LEVEMIR [Concomitant]
     Indication: DIABETES MELLITUS
     Route: 058
  12. ASA [Concomitant]
     Indication: ANTIPLATELET THERAPY
     Route: 048
  13. RANITIDINE [Concomitant]
     Dosage: 150MG TABLETS
     Route: 048
  14. MULTIVITAMIN [Concomitant]
     Route: 048
  15. ACCUPRIL [Concomitant]
     Indication: BLOOD PRESSURE
     Dosage: 40 MG TABLET
     Route: 048
  16. SULFASALAZINE [Concomitant]
     Indication: RHEUMATOID ARTHRITIS
  17. CHLORPHENIRAMINE MALEATE [Concomitant]
     Indication: MULTIPLE ALLERGIES
     Dosage: EXTENDED-RELEASE CAPSULE
  18. COREG [Concomitant]
     Indication: CARDIAC FAILURE CONGESTIVE
  19. EDECRIN /00020501/ [Concomitant]
     Indication: CARDIAC FAILURE CONGESTIVE
     Dosage: ALSO USED FOR ALLERGIC EDEMA
  20. REGLAN [Concomitant]
     Indication: DIABETIC GASTROPARESIS
     Dosage: 10MG TABLETS
  21. ALEVE [Concomitant]
     Indication: ANKYLOSING SPONDYLITIS
  22. CALCIUM CARBONATE [Concomitant]
     Indication: SUPPLEMENTATION THERAPY
  23. PEPCID AC [Concomitant]
     Dosage: 20 MG TABLETS
  24. IBUPROFEN [Concomitant]
     Indication: ANKYLOSING SPONDYLITIS
  25. TYLENOL ARTHRITIS [Concomitant]
     Indication: ANKYLOSING SPONDYLITIS
     Dosage: 650MG TABLETS
  26. VITAMIN B1 [Concomitant]
     Dosage: HELPS INSULIN RESISTANCE
  27. VITAMIN B12 [Concomitant]
     Dosage: HELPS INSULIN RESISTANCE
  28. VITAMIN B 2 [Concomitant]
     Dosage: 1/4 OF 100MG TABLET
  29. NIACIN [Concomitant]
     Indication: BLOOD CHOLESTEROL
  30. VITAMIN B6 [Concomitant]
  31. VITAMIN B9 [Concomitant]
  32. VITAMIN C [Concomitant]
  33. CHOLECALCIFEROL [Concomitant]

REACTIONS (6)
  - Drug ineffective [Not Recovered/Not Resolved]
  - Depression [Not Recovered/Not Resolved]
  - Hypersomnia [Recovered/Resolved]
  - Arthritis [Not Recovered/Not Resolved]
  - Disturbance in attention [Recovering/Resolving]
  - Arthralgia [Recovered/Resolved]
